FAERS Safety Report 7471144-5 (Version None)
Quarter: 2011Q2

REPORT INFORMATION
  Report Type: 
  Country: None (occurrence: None)
  Receive Date: 20110510
  Receipt Date: 20110425
  Transmission Date: 20111010
  Serious: Yes (Hospitalization)
  Sender: FDA-Public Use
  Company Number: US-BAYER-201025571NA

PATIENT
  Age: 47 Year
  Sex: Female
  Weight: 97.959 kg

DRUGS (12)
  1. HORMONES NOS [Concomitant]
  2. ESTROVEN [Concomitant]
     Dosage: UNK
     Dates: start: 20080225, end: 20080519
  3. LAMICTAL [Concomitant]
     Indication: CONVULSION
     Dosage: 125 MG, HS
     Route: 048
     Dates: start: 20080206
  4. ATIVAN [Concomitant]
     Dosage: 1.0 MG, BID
  5. BUPROPION [Concomitant]
     Indication: DEPRESSION
     Dosage: 300 MG, QD
     Route: 048
     Dates: start: 20070410, end: 20080925
  6. LEXAPRO [Concomitant]
     Indication: DEPRESSION
     Dosage: 20 MG, OM
     Route: 048
     Dates: start: 20070101, end: 20090101
  7. ANTIVERT [Concomitant]
     Dosage: 25 MG, QD
     Dates: start: 20071212, end: 20080313
  8. CALCIUM [CALCIUM] [Concomitant]
     Dosage: 600 MG, UNK
     Route: 048
     Dates: start: 20080225, end: 20080611
  9. ATIVAN [Concomitant]
     Dosage: 0.5 MG, BID
     Dates: start: 20080225, end: 20080314
  10. SINGULAIR [Concomitant]
  11. YAZ [Suspect]
     Indication: MENSTRUATION IRREGULAR
     Dosage: UNK UNK, UNK
     Route: 048
     Dates: start: 20080401, end: 20080601
  12. YAZ [Suspect]
     Indication: OFF LABEL USE

REACTIONS (2)
  - THROMBOSIS [None]
  - PULMONARY EMBOLISM [None]
